FAERS Safety Report 5024613-1 (Version None)
Quarter: 2006Q2

REPORT INFORMATION
  Report Type: 
  Country: None (occurrence: None)
  Receive Date: 20060613
  Receipt Date: 20060531
  Transmission Date: 20061013
  Serious: Yes (Hospitalization)
  Sender: FDA-Public Use
  Company Number: GBWYE672531MAY06

PATIENT
  Sex: Male
  Weight: 98 kg

DRUGS (5)
  1. ENBREL [Suspect]
     Indication: RHEUMATOID ARTHRITIS
     Route: 058
     Dates: start: 20050115, end: 20050831
  2. LANSOPRAZOLE [Concomitant]
     Dosage: UNKNOWN
  3. FOSAMAX [Concomitant]
     Dosage: UNKNOWN
  4. PREDNISOLONE [Concomitant]
     Dosage: UNKNOWN
  5. ACETAMINOPHEN W/ CODEINE [Concomitant]
     Dosage: UNKNOWN

REACTIONS (1)
  - EMPHYSEMA [None]
